FAERS Safety Report 12085285 (Version 1)
Quarter: 2016Q1

REPORT INFORMATION
  Report Type: Spontaneous
  Country: JP (occurrence: JP)
  Receive Date: 20160217
  Receipt Date: 20160217
  Transmission Date: 20160526
  Serious: Yes (Other)
  Sender: FDA-Public Use
  Company Number: JP-ACTAVIS-2016-03078

PATIENT
  Age: 60 Year
  Sex: Female

DRUGS (5)
  1. GEMCITABINE [Suspect]
     Active Substance: GEMCITABINE\GEMCITABINE HYDROCHLORIDE
     Dosage: 800 MG, 1/TWO WEEKS
     Route: 065
  2. DOCETAXEL. [Concomitant]
     Active Substance: DOCETAXEL
     Indication: ANGIOSARCOMA
     Dosage: UNK UNK, ONCE A MONTH
     Route: 065
  3. GEMCITABINE [Suspect]
     Active Substance: GEMCITABINE\GEMCITABINE HYDROCHLORIDE
     Indication: ANGIOSARCOMA
     Dosage: 1000 MG, 1/WEEK; 700MG/M2
     Route: 065
  4. TS-1 [Concomitant]
     Active Substance: GIMERACIL\OTERACIL\TEGAFUR
     Indication: ANGIOSARCOMA
     Dosage: UNK, ONCE A MONTH
     Route: 065
  5. PAZOPANIB [Concomitant]
     Active Substance: PAZOPANIB
     Indication: ANGIOSARCOMA
     Dosage: 400 MG, DAILY
     Route: 048

REACTIONS (3)
  - Influenza like illness [Unknown]
  - Neutropenia [Unknown]
  - Malaise [Unknown]
